FAERS Safety Report 9316839 (Version 1)
Quarter: 2013Q2

REPORT INFORMATION
  Report Type: Spontaneous
  Country: US (occurrence: None)
  Receive Date: 20130522
  Receipt Date: 20130522
  Transmission Date: 20140414
  Serious: Yes (Death)
  Sender: FDA-Public Use
  Company Number: UTC-032985

PATIENT
  Age: 54 Year
  Sex: Female
  Weight: 52.3 kg

DRUGS (3)
  1. TYVASO [Suspect]
     Indication: COR PULMONALE CHRONIC
     Dosage: 18 TO 72 MICROGRAMS (4 IN 1 D), INHALATION?
  2. ADCIRCA (TADALAFIL) ( UNKNOWN) [Concomitant]
  3. COUMADIN (WARFARIN SODIUM) (UNKNOWN) [Concomitant]

REACTIONS (1)
  - Death [None]
